FAERS Safety Report 15609702 (Version 2)
Quarter: 2019Q1

REPORT INFORMATION
  Report Type: Spontaneous
  Country: SG (occurrence: SG)
  Receive Date: 20181113
  Receipt Date: 20190201
  Transmission Date: 20190417
  Serious: Yes (Hospitalization, Other)
  Sender: FDA-Public Use
  Company Number: SG-BAXTER-2018BAX027664

PATIENT

DRUGS (2)
  1. BICART POWDER FOR HAEMODIALYSIS (SODIUM BICARBONATE) [Suspect]
     Active Substance: SODIUM BICARBONATE
     Indication: HAEMODIALYSIS
     Route: 010
     Dates: start: 20181031
  2. SODIUM CHLORIDE INJECTION USP 0.9% [Suspect]
     Active Substance: SODIUM CHLORIDE
     Indication: IRRIGATION THERAPY
     Dosage: 700 ML USED FOR FLUSHING BLOOD LINE AND DIALYZER AND CIRCULATING WITH DIALYSATE FLUID FOR AT LEAST 1
     Route: 010
     Dates: start: 20181031

REACTIONS (4)
  - Hypotension [Recovered/Resolved]
  - Haemorrhage [Unknown]
  - Urticaria [Recovered/Resolved]
  - Haemodialysis complication [None]

NARRATIVE: CASE EVENT DATE: 20181031
